FAERS Safety Report 4537656-9 (Version None)
Quarter: 2005Q1

REPORT INFORMATION
  Report Type: 
  Country: None (occurrence: None)
  Receive Date: 20041221
  Receipt Date: 20040929
  Transmission Date: 20050727
  Serious: Yes (Other)
  Sender: FDA-Public Use
  Company Number: PERC20040025

PATIENT
  Age: 55 Year
  Sex: Female

DRUGS (2)
  1. PERCOCET [Suspect]
     Indication: PAIN
     Dosage: 2 DOSE PO
     Route: 048
     Dates: start: 20040526, end: 20040526
  2. ACETAMINOPHEN OR PLACEBO [Suspect]
     Dates: start: 20040526, end: 20040527

REACTIONS (2)
  - OVERDOSE [None]
  - VOMITING [None]
